FAERS Safety Report 6829035-6 (Version None)
Quarter: 2010Q3

REPORT INFORMATION
  Report Type: 
  Country: None (occurrence: None)
  Receive Date: 20100709
  Receipt Date: 20070227
  Transmission Date: 20110219
  Serious: No
  Sender: FDA-Public Use
  Company Number: US-PFIZER INC-2007015742

PATIENT
  Sex: Female

DRUGS (9)
  1. CHANTIX [Suspect]
     Dates: start: 20061101
  2. VERAPAMIL [Concomitant]
  3. PREVACID [Concomitant]
  4. ZOCOR [Concomitant]
  5. AGGRENOX [Concomitant]
  6. REMERON [Concomitant]
  7. PERPHENAZINE [Concomitant]
  8. PREDNISONE [Concomitant]
  9. HYDROXYZINE [Concomitant]

REACTIONS (2)
  - ANXIETY [None]
  - PRURITUS [None]
